FAERS Safety Report 16956762 (Version 1)
Quarter: 2019Q4

REPORT INFORMATION
  Report Type: Spontaneous
  Country: US (occurrence: US)
  Receive Date: 20190905
  Receipt Date: 20190905
  Transmission Date: 20200122
  Serious: Yes (Other)
  Sender: FDA-Public Use
  Company Number: None

PATIENT
  Age: 70 Year
  Sex: Female
  Weight: 63.5 kg

DRUGS (1)
  1. RECLAST [Suspect]
     Active Substance: ZOLEDRONIC ACID
     Indication: OSTEOPOROSIS POSTMENOPAUSAL
     Dosage: ?          OTHER DOSE:5MG/100ML;OTHER FREQUENCY:1X YEARLY;?
     Route: 042
     Dates: start: 201601, end: 201903

REACTIONS (2)
  - Tooth loss [None]
  - Oral surgery [None]

NARRATIVE: CASE EVENT DATE: 20190704
